FAERS Safety Report 7607632-8 (Version None)
Quarter: 2011Q3

REPORT INFORMATION
  Report Type: 
  Country: None (occurrence: None)
  Receive Date: 20110713
  Receipt Date: 20110504
  Transmission Date: 20111222
  Serious: Yes (Death)
  Sender: FDA-Public Use
  Company Number: PHHY2011VE38692

PATIENT
  Sex: Female

DRUGS (1)
  1. DIOVAN [Suspect]
     Indication: HYPERTENSION
     Dosage: UNK

REACTIONS (4)
  - OVARIAN CANCER [None]
  - SCOLIOSIS [None]
  - CARDIAC DISORDER [None]
  - PAIN IN EXTREMITY [None]
